FAERS Safety Report 7190702-9 (Version None)
Quarter: 2010Q4

REPORT INFORMATION
  Report Type: 
  Country: None (occurrence: None)
  Receive Date: 20101223
  Receipt Date: 20101217
  Transmission Date: 20110411
  Serious: Yes (Other)
  Sender: FDA-Public Use
  Company Number: US-US-EMD SERONO, INC.-233221J09USA

PATIENT
  Sex: Male

DRUGS (2)
  1. REBIF [Suspect]
     Indication: MULTIPLE SCLEROSIS
     Route: 058
     Dates: start: 20090709, end: 20091130
  2. DEPAKOTE [Concomitant]
     Indication: CONVULSION

REACTIONS (3)
  - FATIGUE [None]
  - HUNGER [None]
  - LEUKOENCEPHALOPATHY [None]
